FAERS Safety Report 9412799 (Version 1)
Quarter: 2013Q3

REPORT INFORMATION
  Report Type: Spontaneous
  Country: GB (occurrence: GB)
  Receive Date: 20130722
  Receipt Date: 20130722
  Transmission Date: 20140515
  Serious: Yes (Hospitalization)
  Sender: FDA-Public Use
  Company Number: GB-TEVA-419276ISR

PATIENT
  Age: 76 Year
  Sex: Female

DRUGS (8)
  1. WARFARIN [Suspect]
  2. KEPPRA [Interacting]
     Indication: CONVULSION
     Dosage: 1500 MILLIGRAM DAILY;
     Route: 048
     Dates: start: 20130531, end: 20130612
  3. METFORMIN [Concomitant]
  4. PARACETAMOL [Concomitant]
  5. DIGOXIN [Concomitant]
  6. BISOPROLOL [Concomitant]
  7. ATORVASTATIN [Concomitant]
  8. OMEPRAZOLE [Concomitant]

REACTIONS (3)
  - Liver function test abnormal [Not Recovered/Not Resolved]
  - Hepatic function abnormal [Not Recovered/Not Resolved]
  - Drug interaction [Unknown]
